FAERS Safety Report 13875907 (Version 17)
Quarter: 2020Q1

REPORT INFORMATION
  Report Type: Spontaneous
  Country: CA (occurrence: CA)
  Receive Date: 20170817
  Receipt Date: 20200103
  Transmission Date: 20200409
  Serious: Yes (Other)
  Sender: FDA-Public Use
  Company Number: CA-ROCHE-1978140

PATIENT
  Age: 12 Year
  Sex: Male
  Weight: 64 kg

DRUGS (16)
  1. XOLAIR [Suspect]
     Active Substance: OMALIZUMAB
     Indication: ASTHMA
     Route: 058
     Dates: start: 20170808
  2. INTUNIV [Concomitant]
     Active Substance: GUANFACINE HYDROCHLORIDE
     Indication: PRODUCT USED FOR UNKNOWN INDICATION
     Route: 065
  3. XOLAIR [Suspect]
     Active Substance: OMALIZUMAB
     Route: 058
     Dates: start: 20190108
  4. XOLAIR [Suspect]
     Active Substance: OMALIZUMAB
     Route: 058
     Dates: start: 20170912
  5. XOLAIR [Suspect]
     Active Substance: OMALIZUMAB
     Route: 058
     Dates: start: 20171031
  6. SEROQUEL [Concomitant]
     Active Substance: QUETIAPINE FUMARATE
     Indication: PRODUCT USED FOR UNKNOWN INDICATION
     Route: 065
  7. AVAMYS [Concomitant]
     Active Substance: FLUTICASONE FUROATE
     Indication: PRODUCT USED FOR UNKNOWN INDICATION
     Route: 065
  8. XOLAIR [Suspect]
     Active Substance: OMALIZUMAB
     Route: 058
     Dates: start: 20181211
  9. XOLAIR [Suspect]
     Active Substance: OMALIZUMAB
     Route: 058
     Dates: start: 20190305
  10. XOLAIR [Suspect]
     Active Substance: OMALIZUMAB
     Route: 058
     Dates: start: 20171228
  11. XOLAIR [Suspect]
     Active Substance: OMALIZUMAB
     Route: 058
     Dates: start: 20180125
  12. XOLAIR [Suspect]
     Active Substance: OMALIZUMAB
     Route: 058
     Dates: start: 20180904
  13. XOLAIR [Suspect]
     Active Substance: OMALIZUMAB
     Route: 058
     Dates: start: 20181113
  14. FLUOXETINE [Concomitant]
     Active Substance: FLUOXETINE HYDROCHLORIDE
     Indication: PRODUCT USED FOR UNKNOWN INDICATION
     Dosage: UNK
     Route: 065
     Dates: end: 20160723
  15. PROZAC [Concomitant]
     Active Substance: FLUOXETINE HYDROCHLORIDE
     Indication: PRODUCT USED FOR UNKNOWN INDICATION
     Route: 065
  16. XOLAIR [Suspect]
     Active Substance: OMALIZUMAB
     Route: 058
     Dates: start: 20171003

REACTIONS (25)
  - Staphylococcal infection [Unknown]
  - Autism spectrum disorder [Unknown]
  - Sinusitis [Recovered/Resolved]
  - Dermatitis [Unknown]
  - Blood pressure decreased [Recovering/Resolving]
  - Malaise [Not Recovered/Not Resolved]
  - Blood immunoglobulin E increased [Unknown]
  - Nasopharyngitis [Not Recovered/Not Resolved]
  - Eczema [Recovering/Resolving]
  - Obstructive airways disorder [Unknown]
  - Syncope [Unknown]
  - Heart rate abnormal [Unknown]
  - Weight fluctuation [Unknown]
  - Acne [Recovered/Resolved]
  - Forced expiratory volume decreased [Unknown]
  - Nasal congestion [Unknown]
  - Arthralgia [Unknown]
  - Cough [Recovered/Resolved]
  - Lower respiratory tract infection [Not Recovered/Not Resolved]
  - Influenza like illness [Unknown]
  - Pustule [Unknown]
  - Asthma [Recovered/Resolved]
  - Weight increased [Unknown]
  - Oropharyngeal pain [Recovering/Resolving]
  - Pharyngeal paraesthesia [Recovered/Resolved]

NARRATIVE: CASE EVENT DATE: 20170808
